FAERS Safety Report 9625520 (Version 1)
Quarter: 2013Q4

REPORT INFORMATION
  Report Type: Other
  Country: IT (occurrence: IT)
  Receive Date: 20131016
  Receipt Date: 20131016
  Transmission Date: 20140711
  Serious: Yes (Life-Threatening)
  Sender: FDA-Public Use
  Company Number: IT-SUN PHARMACEUTICAL INDUSTRIES LTD-2013SUN04845

PATIENT
  Sex: 0

DRUGS (1)
  1. OLANZAPINA SUN 2,5 MG COMPRESSA [Suspect]
     Indication: PRODUCT USED FOR UNKNOWN INDICATION
     Dosage: 2.5 MG, QD
     Route: 048
     Dates: start: 20130603, end: 20130619

REACTIONS (4)
  - Anxiety [Unknown]
  - Insomnia [Unknown]
  - Irritability [Unknown]
  - Balance disorder [Unknown]
